FAERS Safety Report 5949910-4 (Version None)
Quarter: 2008Q4

REPORT INFORMATION
  Report Type: 
  Country: None (occurrence: None)
  Receive Date: 20081112
  Receipt Date: 20081030
  Transmission Date: 20090506
  Serious: Yes (Hospitalization)
  Sender: FDA-Public Use
  Company Number: CO-ELI_LILLY_AND_COMPANY-CO200810000921

PATIENT
  Age: 71 Year
  Sex: Male

DRUGS (2)
  1. ZYPREXA [Suspect]
     Indication: BIPOLAR DISORDER
     Dosage: 10 MG, UNKNOWN
     Route: 065
     Dates: start: 20050101
  2. ZYPREXA [Suspect]
     Dosage: 10 MG, UNKNOWN
     Route: 065
     Dates: start: 20080924

REACTIONS (5)
  - CONFUSIONAL STATE [None]
  - DYSPHEMIA [None]
  - ERYTHEMA [None]
  - INSOMNIA [None]
  - MOVEMENT DISORDER [None]
